FAERS Safety Report 16815989 (Version 1)
Quarter: 2019Q3

REPORT INFORMATION
  Report Type: Spontaneous
  Country: BR (occurrence: BR)
  Receive Date: 20190917
  Receipt Date: 20190917
  Transmission Date: 20191005
  Serious: Yes (Other)
  Sender: FDA-Public Use
  Company Number: BR-TORRENT-00005100

PATIENT
  Age: 47 Year
  Sex: Female
  Weight: 57 kg

DRUGS (3)
  1. VENLAFAXINE [Concomitant]
     Active Substance: VENLAFAXINE HYDROCHLORIDE
     Indication: DEPRESSION
     Dosage: ONE TABLET IN MORNING
  2. ANASTROZOLE. [Concomitant]
     Active Substance: ANASTROZOLE
     Indication: BREAST CANCER
     Dosage: ONE TABLET AT NIGHT
     Route: 048
     Dates: start: 201812
  3. VENLIFT OD [Suspect]
     Active Substance: VENLAFAXINE HYDROCHLORIDE
     Indication: DEPRESSION
     Dosage: ONE CAPSULE IN THE MORNING (17 CAPSULES)
     Route: 048
     Dates: start: 20190815, end: 20190904

REACTIONS (5)
  - Drug ineffective [Unknown]
  - Hot flush [Unknown]
  - Product dispensing error [Unknown]
  - Product substitution issue [Unknown]
  - Suicidal ideation [Unknown]

NARRATIVE: CASE EVENT DATE: 2019
